FAERS Safety Report 4314166-5 (Version None)
Quarter: 2004Q1

REPORT INFORMATION
  Report Type: 
  Country: None (occurrence: None)
  Receive Date: 20040308
  Receipt Date: 20040308
  Transmission Date: 20041129
  Serious: Yes (Life-Threatening, Disabling)
  Sender: FDA-Public Use
  Company Number: None

PATIENT
  Age: 54 Year
  Sex: Female
  Weight: 54.8852 kg

DRUGS (1)
  1. NAPROXEN [Suspect]
     Dosage: 1X

REACTIONS (9)
  - ANGER [None]
  - ASTHMA [None]
  - FIBROMYALGIA [None]
  - HEPATOCELLULAR DAMAGE [None]
  - JOINT SWELLING [None]
  - OEDEMA [None]
  - SWELLING FACE [None]
  - URINARY RETENTION [None]
  - WEIGHT INCREASED [None]
